FAERS Safety Report 22005438 (Version 1)
Quarter: 2023Q1

REPORT INFORMATION
  Report Type: Other
  Country: US (occurrence: None)
  Receive Date: 20230217
  Receipt Date: 20230217
  Transmission Date: 20230418
  Serious: Yes (Other)
  Sender: FDA-Public Use
  Company Number: US-ROCHE-3284063

PATIENT
  Age: 34 Year
  Sex: Female
  Weight: 66.738 kg

DRUGS (8)
  1. OCREVUS [Suspect]
     Active Substance: OCRELIZUMAB
     Indication: Relapsing-remitting multiple sclerosis
     Dosage: DATE OF SERVICE 23/!1/2021?LAST DATE OF TREATMENT /DEC/2020
     Route: 042
     Dates: start: 202003
  2. CYMBALTA [Concomitant]
     Active Substance: DULOXETINE HYDROCHLORIDE
  3. ADDERALL [Concomitant]
     Active Substance: AMPHETAMINE ASPARTATE\AMPHETAMINE SULFATE\DEXTROAMPHETAMINE SACCHARATE\DEXTROAMPHETAMINE SULFATE
  4. COD LIVER OIL [Concomitant]
     Active Substance: COD LIVER OIL
  5. HERBALS [Concomitant]
     Active Substance: HERBALS
  6. ZINC [Concomitant]
     Active Substance: ZINC
  7. VITAMIN C [Concomitant]
     Active Substance: ASCORBIC ACID
  8. VITAMINS NOS [Concomitant]
     Active Substance: VITAMINS

REACTIONS (10)
  - COVID-19 [Recovered/Resolved]
  - Paronychia [Recovered/Resolved]
  - Mitochondrial toxicity [Unknown]
  - Hepatic function abnormal [Unknown]
  - Clostridium difficile infection [Unknown]
  - Vitamin B complex deficiency [Unknown]
  - Candida test positive [Unknown]
  - Mycotoxicosis [Unknown]
  - Immunosuppressant drug level increased [Unknown]
  - Blood creatinine increased [Unknown]

NARRATIVE: CASE EVENT DATE: 20210101
